FAERS Safety Report 7874209-9 (Version None)
Quarter: 2011Q4

REPORT INFORMATION
  Report Type: 
  Country: None (occurrence: None)
  Receive Date: 20111030
  Receipt Date: 20110517
  Transmission Date: 20120403
  Serious: No
  Sender: FDA-Public Use
  Company Number: US-AMGEN-USASP2011013122

PATIENT
  Sex: Female

DRUGS (7)
  1. GOLD [Concomitant]
  2. PREDNISONE [Concomitant]
     Dosage: 5 MG, QD
  3. REMICADE [Concomitant]
  4. METHOTREXATE [Concomitant]
  5. ENBREL [Suspect]
     Indication: RHEUMATOID ARTHRITIS
     Dosage: 25 MG, 2 TIMES/WK
     Dates: start: 20090101
  6. HYDROXYCHLOROQUINE SULFATE [Concomitant]
  7. ORENCIA [Concomitant]

REACTIONS (5)
  - DRUG INEFFECTIVE [None]
  - FEELING ABNORMAL [None]
  - PAIN [None]
  - RHEUMATOID ARTHRITIS [None]
  - WEIGHT ABNORMAL [None]
